FAERS Safety Report 10222817 (Version 2)
Quarter: 2014Q2

REPORT INFORMATION
  Report Type: Spontaneous
  Country: US (occurrence: US)
  Receive Date: 20140606
  Receipt Date: 20140606
  Transmission Date: 20141212
  Serious: No
  Sender: FDA-Public Use
  Company Number: US-ASTRAZENECA-2014SE23695

PATIENT
  Age: 603 Month
  Sex: Male
  Weight: 78 kg

DRUGS (7)
  1. SYMBICORT [Suspect]
     Indication: CHRONIC OBSTRUCTIVE PULMONARY DISEASE
     Dosage: 160/4.5, 1-2 PUFFS, TWO TIMES A DAY
     Route: 055
     Dates: start: 201312, end: 20140331
  2. RILUZOLE [Concomitant]
     Indication: AMYOTROPHIC LATERAL SCLEROSIS
     Route: 048
     Dates: start: 201306
  3. ALBUTEROL SULFATE [Concomitant]
     Indication: CHRONIC OBSTRUCTIVE PULMONARY DISEASE
     Route: 055
  4. ALBUTEROL SULFATE [Concomitant]
     Indication: AMYOTROPHIC LATERAL SCLEROSIS
     Route: 055
  5. IPRATROPIUM BROMIDE [Concomitant]
     Indication: CHRONIC OBSTRUCTIVE PULMONARY DISEASE
     Route: 055
  6. IPRATROPIUM BROMIDE [Concomitant]
     Indication: AMYOTROPHIC LATERAL SCLEROSIS
     Route: 055
  7. FLUTICASONE [Concomitant]
     Route: 045

REACTIONS (5)
  - Chest discomfort [Not Recovered/Not Resolved]
  - Feeling abnormal [Unknown]
  - Device misuse [Unknown]
  - Drug dose omission [Not Recovered/Not Resolved]
  - Intentional product misuse [Unknown]
